FAERS Safety Report 8061811-7 (Version None)
Quarter: 2012Q1

REPORT INFORMATION
  Report Type: 
  Country: None (occurrence: None)
  Receive Date: 20120123
  Receipt Date: 20120109
  Transmission Date: 20120608
  Serious: Yes (Hospitalization)
  Sender: FDA-Public Use
  Company Number: JP-PAR PHARMACEUTICAL, INC-2011SCPR003471

PATIENT

DRUGS (4)
  1. LEVODOPA [Suspect]
     Dosage: 150 MG, / DAY
     Route: 065
  2. LEVODOPA [Suspect]
     Dosage: 200 MG, / DAY
     Route: 065
  3. LEVODOPA [Suspect]
     Indication: PARKINSON'S DISEASE
     Dosage: 200 MG, / DAY
     Route: 065
  4. CABERGOLINE [Suspect]
     Indication: PARKINSON'S DISEASE
     Dosage: 1.0 MG, / DAY
     Route: 065

REACTIONS (3)
  - HALLUCINATION, VISUAL [None]
  - PSYCHOTIC DISORDER [None]
  - DELUSION [None]
